FAERS Safety Report 7421842-4 (Version None)
Quarter: 2011Q2

REPORT INFORMATION
  Report Type: 
  Country: None (occurrence: None)
  Receive Date: 20110418
  Receipt Date: 20110414
  Transmission Date: 20111010
  Serious: Yes (Other)
  Sender: FDA-Public Use
  Company Number: US-PFIZER INC-2011083571

PATIENT
  Sex: Male
  Weight: 88.435 kg

DRUGS (4)
  1. NEURONTIN [Suspect]
     Indication: TOXIC NEUROPATHY
     Dosage: 300 MG, 3X/DAY
     Route: 048
     Dates: start: 20110413, end: 20110414
  2. ENOXAPARIN SODIUM [Concomitant]
     Indication: PULMONARY EMBOLISM
     Dosage: 140 MG, 1X/DAY
  3. PROTONIX [Suspect]
     Indication: NEOPLASM MALIGNANT
  4. PROTONIX [Suspect]
     Indication: GASTROOESOPHAGEAL REFLUX DISEASE
     Dosage: 40 MG, 1X/DAY
     Route: 048

REACTIONS (5)
  - HYPOAESTHESIA [None]
  - COORDINATION ABNORMAL [None]
  - DIARRHOEA [None]
  - DISORIENTATION [None]
  - DIZZINESS [None]
